FAERS Safety Report 7910414-0 (Version None)
Quarter: 2011Q4

REPORT INFORMATION
  Report Type: 
  Country: None (occurrence: None)
  Receive Date: 20111111
  Receipt Date: 20111104
  Transmission Date: 20120403
  Serious: Yes (Other)
  Sender: FDA-Public Use
  Company Number: BR-ROCHE-1009048

PATIENT
  Sex: Male
  Weight: 74 kg

DRUGS (5)
  1. ACTINEX [Concomitant]
  2. EPISOL [Concomitant]
  3. ISOTRETINOIN [Suspect]
     Indication: ACNE
     Route: 048
     Dates: start: 20071001, end: 20080801
  4. ISOTRETINOIN [Suspect]
     Dates: start: 20090601, end: 20100301
  5. EPIDRAT [Concomitant]

REACTIONS (14)
  - HEADACHE [None]
  - PANIC DISORDER [None]
  - DEPRESSION [None]
  - ACNE [None]
  - LIP DRY [None]
  - LIP DISORDER [None]
  - MACULE [None]
  - THERMOHYPERAESTHESIA [None]
  - ANXIETY [None]
  - ARTHRALGIA [None]
  - PRURITUS [None]
  - INTRACRANIAL PRESSURE INCREASED [None]
  - MUCOSAL DRYNESS [None]
  - EYE DISORDER [None]
